FAERS Safety Report 15631136 (Version 1)
Quarter: 2018Q4

REPORT INFORMATION
  Report Type: Spontaneous
  Country: US (occurrence: US)
  Receive Date: 20181112
  Receipt Date: 20181112
  Transmission Date: 20190205
  Serious: No
  Sender: FDA-Public Use
  Company Number: None

PATIENT
  Age: 53 Year
  Sex: Female

DRUGS (1)
  1. RIBAVIRIN 200 MG ZYDUS PHARMACEUTICALS [Suspect]
     Active Substance: RIBAVIRIN
     Indication: HEPATITIS C
     Dosage: ?          OTHER DOSE:600MG/400MG;OTHER FREQUENCY:600MG AM/400GM PM;?
     Route: 048
     Dates: start: 20181107

REACTIONS (2)
  - Epistaxis [None]
  - Anaemia [None]

NARRATIVE: CASE EVENT DATE: 20181108
